FAERS Safety Report 25679538 (Version 1)
Quarter: 2025Q3

REPORT INFORMATION
  Report Type: Spontaneous
  Country: GB (occurrence: GB)
  Receive Date: 20250814
  Receipt Date: 20250814
  Transmission Date: 20251021
  Serious: Yes (Life-Threatening, Other)
  Sender: TEVA
  Company Number: None

PATIENT
  Age: 68 Year
  Sex: Female
  Weight: 76 kg

DRUGS (2)
  1. TRIMETHOPRIM [Suspect]
     Active Substance: TRIMETHOPRIM
     Indication: Adverse drug reaction
     Route: 065
     Dates: start: 2025, end: 20250805
  2. RAMIPRIL [Concomitant]
     Active Substance: RAMIPRIL
     Indication: Product used for unknown indication

REACTIONS (17)
  - Swelling face [Unknown]
  - Anxiety [Unknown]
  - Blood sodium decreased [Unknown]
  - Fatigue [Unknown]
  - Dizziness [Unknown]
  - Depression [Unknown]
  - Dyspnoea [Not Recovered/Not Resolved]
  - Dyspnoea [Unknown]
  - Skin discolouration [Unknown]
  - Muscle spasms [Unknown]
  - Agitation [Unknown]
  - Constipation [Unknown]
  - Confusional state [Unknown]
  - Malaise [Unknown]
  - Dysuria [Unknown]
  - Decreased appetite [Unknown]
  - Glossodynia [Unknown]

NARRATIVE: CASE EVENT DATE: 20250701
